FAERS Safety Report 8342909-2 (Version None)
Quarter: 2012Q2

REPORT INFORMATION
  Report Type: 
  Country: None (occurrence: None)
  Receive Date: 20120508
  Receipt Date: 20120504
  Transmission Date: 20120825
  Serious: No
  Sender: FDA-Public Use
  Company Number: US-PFIZER INC-2012110027

PATIENT
  Sex: Female
  Weight: 77.1 kg

DRUGS (9)
  1. NEURONTIN [Suspect]
     Indication: FIBROMYALGIA
     Dosage: 900 MG, 3X/DAY
     Dates: start: 20100101, end: 20120101
  2. CYMBALTA [Concomitant]
     Indication: DEPRESSION
     Dosage: 60 MG, DAILY
  3. OXYCODONE [Concomitant]
     Indication: FIBROMYALGIA
     Dosage: UNK
  4. NEURONTIN [Suspect]
     Indication: BURNING SENSATION
  5. NEURONTIN [Suspect]
     Indication: HEADACHE
  6. NEURONTIN [Suspect]
     Indication: AMNESIA
  7. SOMA [Concomitant]
     Indication: BACK PAIN
     Dosage: 250 MG, 2X/DAY
  8. NEURONTIN [Suspect]
     Indication: PAIN
  9. BUSPAR [Concomitant]
     Indication: PANIC ATTACK
     Dosage: 30 MG, 2X/DAY

REACTIONS (3)
  - BURNING SENSATION [None]
  - PAIN [None]
  - HEADACHE [None]
